FAERS Safety Report 11526844 (Version 1)
Quarter: 2015Q3

REPORT INFORMATION
  Report Type: Spontaneous
  Country: US (occurrence: US)
  Receive Date: 20150903
  Receipt Date: 20150903
  Transmission Date: 20151125
  Serious: No
  Sender: FDA-Public Use
  Company Number: US-ELI_LILLY_AND_COMPANY-US201404001843

PATIENT
  Sex: Female

DRUGS (5)
  1. KLONOPIN [Concomitant]
     Active Substance: CLONAZEPAM
     Indication: ANXIETY
     Dosage: UNK, UNKNOWN
     Route: 065
  2. CYMBALTA [Suspect]
     Active Substance: DULOXETINE HYDROCHLORIDE
     Indication: POST-TRAUMATIC STRESS DISORDER
  3. LYRICA [Concomitant]
     Active Substance: PREGABALIN
     Indication: FIBROMYALGIA
     Dosage: UNK, UNKNOWN
     Route: 065
  4. CYMBALTA [Suspect]
     Active Substance: DULOXETINE HYDROCHLORIDE
     Indication: FIBROMYALGIA
  5. CYMBALTA [Suspect]
     Active Substance: DULOXETINE HYDROCHLORIDE
     Indication: DEPRESSION
     Dosage: 60 MG, QD
     Route: 065
     Dates: start: 2011

REACTIONS (14)
  - Tremor [Unknown]
  - Fear [Unknown]
  - Drug withdrawal syndrome [Unknown]
  - Peripheral coldness [Unknown]
  - Emotional distress [Unknown]
  - Irritability [Unknown]
  - Cold sweat [Unknown]
  - Insomnia [Unknown]
  - Decreased appetite [Unknown]
  - Anxiety [Unknown]
  - Intervertebral disc protrusion [Unknown]
  - Feeling abnormal [Unknown]
  - Crying [Unknown]
  - Intentional product misuse [Unknown]
